FAERS Safety Report 6376358-3 (Version None)
Quarter: 2009Q3

REPORT INFORMATION
  Report Type: 
  Country: None (occurrence: None)
  Receive Date: 20090922
  Receipt Date: 20090922
  Transmission Date: 20100115
  Serious: Yes (Other)
  Sender: FDA-Public Use
  Company Number: None

PATIENT
  Age: 38 Year
  Sex: Male
  Weight: 108.8633 kg

DRUGS (2)
  1. LOVENOX [Suspect]
     Indication: DEEP VEIN THROMBOSIS
     Dosage: 100 MG EVERY 12 HOURS SQ
     Route: 058
     Dates: start: 20090903, end: 20090910
  2. ENOXAPARIN 100 MG [Suspect]
     Indication: DEEP VEIN THROMBOSIS
     Dosage: 100 MG EVERY 12 HOURS SQ
     Route: 058
     Dates: start: 20090910, end: 20090914

REACTIONS (2)
  - EATING DISORDER [None]
  - NAUSEA [None]
